FAERS Safety Report 24436025 (Version 2)
Quarter: 2024Q4

REPORT INFORMATION
  Report Type: Spontaneous
  Country: US (occurrence: US)
  Receive Date: 20241015
  Receipt Date: 20241015
  Transmission Date: 20250115
  Serious: Yes (Hospitalization, Other)
  Sender: ROCHE
  Company Number: US-ROCHE-10000100594

PATIENT
  Age: 66 Year
  Sex: Male
  Weight: 60.33 kg

DRUGS (5)
  1. VABYSMO [Suspect]
     Active Substance: FARICIMAB-SVOA
     Indication: Retinal detachment
     Dosage: LAST INJECTION OF FARICIMAB WAS ON 24/SEP/2024
     Route: 050
  2. METFORMIN [Concomitant]
     Active Substance: METFORMIN HYDROCHLORIDE
     Indication: Diabetes mellitus
     Route: 048
  3. LANTUS [Concomitant]
     Active Substance: INSULIN GLARGINE
     Indication: Diabetes mellitus
  4. FUROSEMIDE [Concomitant]
     Active Substance: FUROSEMIDE
     Indication: Peripheral swelling
     Route: 048
  5. PANTOPRAZOLE [Concomitant]
     Active Substance: PANTOPRAZOLE
     Dosage: STOMACH DUE TO BLOATING
     Route: 048

REACTIONS (6)
  - Off label use [Unknown]
  - Visual field defect [Not Recovered/Not Resolved]
  - Cataract [Not Recovered/Not Resolved]
  - Pneumonia [Recovered/Resolved]
  - Peripheral swelling [Unknown]
  - Sepsis [Unknown]

NARRATIVE: CASE EVENT DATE: 20231201
